FAERS Safety Report 23549099 (Version 1)
Quarter: 2024Q1

REPORT INFORMATION
  Report Type: Report from Study
  Country: US (occurrence: US)
  Receive Date: 20240221
  Receipt Date: 20240221
  Transmission Date: 20240410
  Serious: Yes (Death, Other)
  Sender: FDA-Public Use
  Company Number: US-BAYER-2024A022821

PATIENT
  Age: 87 Year
  Sex: Female

DRUGS (2)
  1. ADEMPAS [Suspect]
     Active Substance: RIOCIGUAT
     Indication: Pulmonary hypertension
     Dosage: 0.5 MG, TID
     Dates: start: 20240201
  2. ADEMPAS [Suspect]
     Active Substance: RIOCIGUAT
     Indication: Pulmonary hypertension
     Dosage: 0.5 MG, BID
     Route: 048

REACTIONS (3)
  - Death [Fatal]
  - Blood pressure decreased [Recovered/Resolved]
  - Inappropriate schedule of product administration [None]

NARRATIVE: CASE EVENT DATE: 20240201
